FAERS Safety Report 13954361 (Version 1)
Quarter: 2017Q3

REPORT INFORMATION
  Report Type: Spontaneous
  Country: US (occurrence: US)
  Receive Date: 20170909
  Receipt Date: 20170909
  Transmission Date: 20171128
  Serious: Yes (Disabling)
  Sender: FDA-Public Use
  Company Number: None

PATIENT
  Age: 48 Year
  Sex: Female
  Weight: 63.45 kg

DRUGS (1)
  1. DG HEALTH NASAL ORIGINAL [Suspect]
     Active Substance: OXYMETAZOLINE HYDROCHLORIDE
     Indication: NASAL DISORDER
     Dosage: OTHER STRENGTH:SPRAY;QUANTITY:1 SPRAY(S);OTHER ROUTE:INNOSE?
     Dates: start: 20060607, end: 20170908

REACTIONS (5)
  - Drug hypersensitivity [None]
  - Eye swelling [None]
  - Eye irritation [None]
  - Ocular hyperaemia [None]
  - Product expiration date issue [None]

NARRATIVE: CASE EVENT DATE: 20170908
